FAERS Safety Report 9241074 (Version 1)
Quarter: 2013Q2

REPORT INFORMATION
  Report Type: Spontaneous
  Country: US (occurrence: US)
  Receive Date: 20130419
  Receipt Date: 20130419
  Transmission Date: 20140414
  Serious: No
  Sender: FDA-Public Use
  Company Number: US-SANOFI-AVENTIS-2013SA022567

PATIENT
  Age: 65 Year
  Sex: Female

DRUGS (2)
  1. LOVENOX [Suspect]
     Indication: DEEP VEIN THROMBOSIS
  2. LOVENOX [Suspect]
     Indication: CEREBROVASCULAR ACCIDENT

REACTIONS (2)
  - Injection site scar [Not Recovered/Not Resolved]
  - Contusion [Not Recovered/Not Resolved]
